FAERS Safety Report 15844122 (Version 1)
Quarter: 2019Q1

REPORT INFORMATION
  Report Type: Spontaneous
  Country: DK (occurrence: DK)
  Receive Date: 20190118
  Receipt Date: 20190118
  Transmission Date: 20190417
  Serious: Yes (Hospitalization)
  Sender: FDA-Public Use
  Company Number: DK-009507513-1901DNK006236

PATIENT
  Age: 56 Year
  Sex: Female

DRUGS (7)
  1. CLOPIDOGREL [Concomitant]
     Active Substance: CLOPIDOGREL BISULFATE
     Indication: THROMBOSIS PROPHYLAXIS
     Dosage: STRENGTH: 75 MG
     Route: 048
     Dates: start: 2013
  2. KEYTRUDA [Suspect]
     Active Substance: PEMBROLIZUMAB
     Indication: NON-SMALL CELL LUNG CANCER
     Dosage: STRENGTH: 25 MG/ML
     Route: 042
     Dates: start: 20181219
  3. LOSARSTAD [Concomitant]
     Indication: HYPERTENSION
     Dosage: STRENGTH: 100 MG
     Route: 048
     Dates: start: 2014
  4. METFORMIN ACTAVIS [Concomitant]
     Active Substance: METFORMIN HYDROCHLORIDE
     Indication: TYPE 2 DIABETES MELLITUS
     Dosage: STRENGTH: 500 MG
     Route: 048
     Dates: start: 2014
  5. CIPRALEX [Concomitant]
     Active Substance: ESCITALOPRAM OXALATE
     Indication: DEPRESSION
     Dosage: STRENGTH: 20 MG
     Route: 048
     Dates: start: 2015
  6. ATORVASTATIN [Concomitant]
     Active Substance: ATORVASTATIN
     Indication: HYPERCHOLESTEROLAEMIA
     Dosage: STRENGTH: 80 MG
     Route: 048
     Dates: start: 2013
  7. ELTROXIN [Concomitant]
     Active Substance: LEVOTHYROXINE
     Indication: HYPOMETABOLISM
     Dosage: STRENGTH: 100+ 50 MICROGRAMS DOSAGE: 50 MILLIGRAM (MG): ONE (1) TABLET DAILY THREE (3) DAYS A WEEK
     Route: 048
     Dates: start: 2014

REACTIONS (6)
  - Fatigue [Unknown]
  - Headache [Unknown]
  - Vomiting [Unknown]
  - Blood glucose increased [Unknown]
  - Diabetes mellitus [Not Recovered/Not Resolved]
  - Nausea [Unknown]

NARRATIVE: CASE EVENT DATE: 20181223
